FAERS Safety Report 5595568-6 (Version None)
Quarter: 2008Q1

REPORT INFORMATION
  Report Type: 
  Country: None (occurrence: None)
  Receive Date: 20080118
  Receipt Date: 20080114
  Transmission Date: 20080703
  Serious: Yes (Life-Threatening, Hospitalization)
  Sender: FDA-Public Use
  Company Number: PHBS2008ES00818

PATIENT
  Age: 87 Year
  Sex: Male

DRUGS (1)
  1. ZOLEDRONIC ACID [Suspect]
     Indication: METASTASES TO BONE
     Dosage: 4 MG, UNK

REACTIONS (7)
  - CONFUSIONAL STATE [None]
  - GRAND MAL CONVULSION [None]
  - HYPERPARATHYROIDISM SECONDARY [None]
  - HYPOCALCAEMIA [None]
  - STUPOR [None]
  - TROUSSEAU'S SYNDROME [None]
  - VITAMIN D DEFICIENCY [None]
